FAERS Safety Report 5915116-8 (Version None)
Quarter: 2008Q4

REPORT INFORMATION
  Report Type: 
  Country: None (occurrence: None)
  Receive Date: 20081010
  Receipt Date: 20081007
  Transmission Date: 20090506
  Serious: Yes (Hospitalization)
  Sender: FDA-Public Use
  Company Number: B0540830A

PATIENT
  Age: 53 Year
  Sex: Female
  Weight: 60 kg

DRUGS (3)
  1. LAPATINIB [Suspect]
     Dosage: 1250MGD PER DAY
     Route: 048
     Dates: start: 20080417
  2. CAPECITABINE [Suspect]
     Dosage: 1000MGM2 TWICE PER DAY
     Route: 048
     Dates: start: 20080417
  3. MEDROL [Concomitant]
     Dosage: 4MG TWICE PER DAY
     Route: 048
     Dates: start: 20071213

REACTIONS (3)
  - DIARRHOEA [None]
  - HYPERBILIRUBINAEMIA [None]
  - HYPOKALAEMIA [None]
